FAERS Safety Report 7080647-7 (Version None)
Quarter: 2010Q4

REPORT INFORMATION
  Report Type: 
  Country: None (occurrence: None)
  Receive Date: 20101103
  Receipt Date: 20101021
  Transmission Date: 20110411
  Serious: Yes (Other)
  Sender: FDA-Public Use
  Company Number: US-ELI_LILLY_AND_COMPANY-US201010005486

PATIENT
  Sex: Female
  Weight: 45.351 kg

DRUGS (6)
  1. FORTEO [Suspect]
     Dosage: 20 UG, UNKNOWN
  2. OXYCONTIN [Concomitant]
     Indication: PAIN
  3. OXYCODONE HCL AND ACETAMINOPHEN [Concomitant]
     Indication: PAIN
  4. DULCOLAX [Concomitant]
     Indication: CONSTIPATION
  5. LISINOPRIL [Concomitant]
     Indication: BLOOD PRESSURE
  6. GABAPENTIN [Concomitant]

REACTIONS (2)
  - MULTIPLE MYELOMA [None]
  - SPINAL FRACTURE [None]
